FAERS Safety Report 9916196 (Version 1)
Quarter: 2014Q1

REPORT INFORMATION
  Report Type: Spontaneous
  Country: DE (occurrence: DE)
  Receive Date: 20140221
  Receipt Date: 20140221
  Transmission Date: 20141002
  Serious: Yes (Disabling, Other)
  Sender: FDA-Public Use
  Company Number: DE-ASTELLAS-2014US001786

PATIENT
  Age: 80 Year
  Sex: Female

DRUGS (4)
  1. TARCEVA [Suspect]
     Indication: BRONCHIAL CARCINOMA
     Dosage: 150 MG, UID/QD
     Route: 048
     Dates: start: 20130426
  2. NOVALGIN                           /06276704/ [Concomitant]
     Indication: PAIN
     Dosage: 20 GTT
     Route: 048
     Dates: start: 20130121
  3. FELODIPIN [Concomitant]
     Indication: HYPERTENSION
     Dosage: 10 MG, UID/QD
     Route: 048
  4. RAMPRIL [Concomitant]
     Indication: HYPERTENSION
     Dosage: 5 MG, UID/QD
     Route: 048

REACTIONS (5)
  - Alopecia areata [Not Recovered/Not Resolved]
  - Eczema [Not Recovered/Not Resolved]
  - Drug eruption [Not Recovered/Not Resolved]
  - Alopecia [Unknown]
  - Rash [Unknown]
